FAERS Safety Report 7215609-X (Version None)
Quarter: 2011Q1

REPORT INFORMATION
  Report Type: 
  Country: None (occurrence: None)
  Receive Date: 20110104
  Receipt Date: 20110104
  Transmission Date: 20110831
  Serious: Yes (Other)
  Sender: FDA-Public Use
  Company Number: None

PATIENT
  Age: 39 Year
  Sex: Female
  Weight: 68.0396 kg

DRUGS (1)
  1. OXYCOTIN OP 20 PURDUE [Suspect]
     Indication: SPINAL DISORDER
     Dosage: 20 MG 2 TIMES DAILY PO
     Route: 048
     Dates: start: 20101223, end: 20101231

REACTIONS (8)
  - DIZZINESS [None]
  - HYPERHIDROSIS [None]
  - DRUG EFFECT DECREASED [None]
  - VOMITING [None]
  - NAUSEA [None]
  - ACTIVITIES OF DAILY LIVING IMPAIRED [None]
  - PRODUCT FORMULATION ISSUE [None]
  - IMPAIRED WORK ABILITY [None]
